FAERS Safety Report 16229031 (Version 1)
Quarter: 2019Q2

REPORT INFORMATION
  Report Type: Report from Study
  Country: US (occurrence: US)
  Receive Date: 20190423
  Receipt Date: 20190423
  Transmission Date: 20190711
  Serious: Yes (Hospitalization, Other)
  Sender: FDA-Public Use
  Company Number: US-GILEAD-2019-0403336

PATIENT
  Age: 83 Year
  Sex: Male

DRUGS (1)
  1. AZTREONAM LYSINE [Suspect]
     Active Substance: AZTREONAM LYSINE
     Indication: PSEUDOMONAS INFECTION
     Dosage: 75 MG, TID QOM
     Route: 055
     Dates: start: 201606

REACTIONS (11)
  - Depression [Unknown]
  - Off label use [Not Recovered/Not Resolved]
  - Asthenia [Unknown]
  - Hypophagia [Recovered/Resolved]
  - Treatment noncompliance [Recovered/Resolved]
  - Head injury [Unknown]
  - Fall [Unknown]
  - Influenza [Recovered/Resolved]
  - General physical health deterioration [Unknown]
  - Intentional product use issue [Recovered/Resolved]
  - Pneumonia [Unknown]

NARRATIVE: CASE EVENT DATE: 201606
